FAERS Safety Report 23429379 (Version 2)
Quarter: 2024Q1

REPORT INFORMATION
  Report Type: Spontaneous
  Country: JP (occurrence: JP)
  Receive Date: 20240122
  Receipt Date: 20240130
  Transmission Date: 20240410
  Serious: Yes (Hospitalization)
  Sender: FDA-Public Use
  Company Number: JP-DSJP-DSJ-2024-102069

PATIENT
  Age: 76 Year
  Sex: Male
  Weight: 60 kg

DRUGS (4)
  1. EDOXABAN TOSYLATE [Suspect]
     Active Substance: EDOXABAN TOSYLATE
     Indication: Atrial fibrillation
     Dosage: 15 MG, QD
     Route: 048
     Dates: start: 2023, end: 20230511
  2. AMLODIPINE\TELMISARTAN [Concomitant]
     Active Substance: AMLODIPINE\TELMISARTAN
     Dosage: 1 DF, QD
     Route: 048
  3. AMLODIPINE BESYLATE [Concomitant]
     Active Substance: AMLODIPINE BESYLATE
     Dosage: 5 MG, QD
     Route: 048
  4. PRAVASTATIN SODIUM [Concomitant]
     Active Substance: PRAVASTATIN SODIUM
     Dosage: 10 MG, QD
     Route: 048

REACTIONS (3)
  - Pulmonary alveolar haemorrhage [Recovered/Resolved]
  - Eosinophilic granulomatosis with polyangiitis [Unknown]
  - Epistaxis [Unknown]

NARRATIVE: CASE EVENT DATE: 20230101
